FAERS Safety Report 5894235-9 (Version None)
Quarter: 2008Q3

REPORT INFORMATION
  Report Type: 
  Country: None (occurrence: None)
  Receive Date: 20080923
  Receipt Date: 20080304
  Transmission Date: 20090109
  Serious: No
  Sender: FDA-Public Use
  Company Number: US-ASTRAZENECA-2008UW04419

PATIENT
  Sex: Male

DRUGS (3)
  1. SEROQUEL [Suspect]
     Indication: ANXIETY
     Dosage: 25 MG TID PLUS 50 MG HS
     Route: 048
     Dates: start: 20080201
  2. PHENOBARBITAL TAB [Concomitant]
     Route: 048
     Dates: start: 20080206, end: 20080211
  3. PHENOBARBITAL TAB [Concomitant]
     Route: 048
     Dates: start: 20080303

REACTIONS (5)
  - COLD SWEAT [None]
  - DIZZINESS [None]
  - HEADACHE [None]
  - POLLAKIURIA [None]
  - TREMOR [None]
